FAERS Safety Report 9769380 (Version 1)
Quarter: 2013Q4

REPORT INFORMATION
  Report Type: Spontaneous
  Country: US (occurrence: US)
  Receive Date: 20131218
  Receipt Date: 20131218
  Transmission Date: 20140711
  Serious: No
  Sender: FDA-Public Use
  Company Number: US-009507513-1312USA006449

PATIENT
  Age: 54 Year
  Sex: Female

DRUGS (14)
  1. DULERA [Suspect]
     Indication: ASTHMA
     Dosage: 2 PUFFS, BID
     Route: 055
     Dates: start: 201012
  2. DULERA [Suspect]
     Indication: HYPERSENSITIVITY
  3. QVAR [Concomitant]
  4. PATANASE [Concomitant]
  5. FLUTICASONE [Concomitant]
  6. SINGULAIR [Concomitant]
  7. ZYRTEC [Concomitant]
  8. CLARITIN [Concomitant]
  9. PROTONIX [Concomitant]
  10. BENADRYL [Concomitant]
  11. PREDNISONE [Concomitant]
  12. LOSARTAN POTASSIUM [Concomitant]
  13. HYDROCHLOROTHIAZIDE [Concomitant]
  14. AEROBID [Concomitant]

REACTIONS (2)
  - Chest discomfort [Not Recovered/Not Resolved]
  - Drug dose omission [Unknown]
